FAERS Safety Report 4772199-9 (Version None)
Quarter: 2005Q3

REPORT INFORMATION
  Report Type: 
  Country: None (occurrence: None)
  Receive Date: 20050919
  Receipt Date: 20041123
  Transmission Date: 20060218
  Serious: No
  Sender: FDA-Public Use
  Company Number: PR-BRISTOL-MYERS SQUIBB COMPANY-12775227

PATIENT
  Sex: Male

DRUGS (1)
  1. DEFINITY [Suspect]

REACTIONS (2)
  - CHEILITIS [None]
  - HYPOAESTHESIA [None]
